FAERS Safety Report 11351281 (Version 1)
Quarter: 2015Q3

REPORT INFORMATION
  Report Type: Spontaneous
  Country: US (occurrence: US)
  Receive Date: 20150807
  Receipt Date: 20150807
  Transmission Date: 20151125
  Serious: No
  Sender: FDA-Public Use
  Company Number: US-JNJFOC-20150104864

PATIENT
  Sex: Female
  Weight: 63.5 kg

DRUGS (12)
  1. WOMENS ROGAINE EXTRA STRENGTH [Suspect]
     Active Substance: MINOXIDIL
     Indication: ALOPECIA
     Dosage: SOMETIMES A LITTLE MORE THAN HALF A CAP
     Route: 061
     Dates: start: 20141202
  2. VITAMIN C [Concomitant]
     Active Substance: ASCORBIC ACID
     Indication: ROUTINE HEALTH MAINTENANCE
     Route: 065
  3. RESVERATROL [Concomitant]
     Active Substance: RESVERATROL
     Indication: ROUTINE HEALTH MAINTENANCE
     Route: 065
  4. SYNTHROID [Concomitant]
     Active Substance: LEVOTHYROXINE SODIUM
     Indication: HYPOTHYROIDISM
     Dosage: 112 MCG
     Route: 065
  5. WOMENS ROGAINE EXTRA STRENGTH [Suspect]
     Active Substance: MINOXIDIL
     Route: 061
  6. LIPITOR [Concomitant]
     Active Substance: ATORVASTATIN CALCIUM
     Indication: BLOOD CHOLESTEROL
     Route: 065
  7. CO-Q10 [Concomitant]
     Indication: CARDIAC DISORDER
     Route: 065
  8. CO-Q10 [Concomitant]
     Indication: ANTIOXIDANT THERAPY
     Route: 065
  9. RESVERATROL [Concomitant]
     Active Substance: RESVERATROL
     Indication: ANTIOXIDANT THERAPY
     Route: 065
  10. TURMERIC [Concomitant]
     Active Substance: TURMERIC
     Indication: ANTIOXIDANT THERAPY
     Route: 065
  11. ATENOLOL. [Concomitant]
     Active Substance: ATENOLOL
     Indication: HYPERTENSION
     Route: 065
  12. TURMERIC [Concomitant]
     Active Substance: TURMERIC
     Indication: ROUTINE HEALTH MAINTENANCE
     Route: 065

REACTIONS (5)
  - Product formulation issue [Unknown]
  - Hair texture abnormal [Not Recovered/Not Resolved]
  - Hair disorder [Not Recovered/Not Resolved]
  - Incorrect dose administered [Unknown]
  - Inappropriate schedule of drug administration [Unknown]
